FAERS Safety Report 18329364 (Version 1)
Quarter: 2020Q3

REPORT INFORMATION
  Report Type: Spontaneous
  Country: US (occurrence: US)
  Receive Date: 20200927
  Receipt Date: 20200927
  Transmission Date: 20201103
  Serious: No
  Sender: FDA-Public Use
  Company Number: None

PATIENT
  Age: 6 Decade
  Sex: Female

DRUGS (4)
  1. INTERFERON [Suspect]
     Active Substance: INTERFERON
     Dosage: ?          OTHER DOSE:6.0X106 IU;OTHER ROUTE:AEROSOL?
  2. ARBIDOL [Suspect]
     Active Substance: UMIFENOVIR
     Route: 048
  3. LOPINAVIR?RITONAVIR [Suspect]
     Active Substance: LOPINAVIR\RITONAVIR
     Dosage: ?          OTHER DOSE:400/100 MG;?
     Route: 048
  4. LIANHUAQINGWEN [Suspect]
     Active Substance: HERBALS
     Indication: COVID-19
     Route: 048
     Dates: start: 2020

REACTIONS (1)
  - Off label use [None]
